FAERS Safety Report 12470922 (Version 1)
Quarter: 2016Q2

REPORT INFORMATION
  Report Type: Spontaneous
  Country: FR (occurrence: FR)
  Receive Date: 20160616
  Receipt Date: 20160616
  Transmission Date: 20160815
  Serious: Yes (Other)
  Sender: FDA-Public Use
  Company Number: FR-EMD SERONO-8088890

PATIENT
  Age: 34 Year
  Sex: Female

DRUGS (5)
  1. GONAL-F [Suspect]
     Active Substance: FOLLITROPIN
  2. PROGESTAN [Concomitant]
     Active Substance: PROGESTERONE
     Indication: PRODUCT USED FOR UNKNOWN INDICATION
     Route: 067
     Dates: start: 201510, end: 201605
  3. GONAL-F [Suspect]
     Active Substance: FOLLITROPIN
     Indication: ARTIFICIAL INSEMINATION BY DONOR
     Dates: start: 201510, end: 201605
  4. GONAL-F [Suspect]
     Active Substance: FOLLITROPIN
     Dates: end: 201605
  5. OVITRELLE [Suspect]
     Active Substance: CHORIOGONADOTROPIN ALFA
     Indication: ARTIFICIAL INSEMINATION BY DONOR
     Dates: start: 201510, end: 201605

REACTIONS (4)
  - Respiratory disorder [Recovering/Resolving]
  - Hyperventilation [Recovering/Resolving]
  - Cardiac disorder [Recovering/Resolving]
  - Depression [Recovering/Resolving]

NARRATIVE: CASE EVENT DATE: 201605
